FAERS Safety Report 25222227 (Version 1)
Quarter: 2025Q2

REPORT INFORMATION
  Report Type: Spontaneous
  Country: CN (occurrence: CN)
  Receive Date: 20250421
  Receipt Date: 20250421
  Transmission Date: 20250716
  Serious: Yes (Hospitalization)
  Sender: NOVARTIS
  Company Number: CN-002147023-NVSC2025CN063702

PATIENT
  Age: 67 Year
  Sex: Male
  Weight: 50 kg

DRUGS (2)
  1. CAPMATINIB [Suspect]
     Active Substance: CAPMATINIB
     Indication: Lung neoplasm malignant
     Dosage: 200.000 MG, BID
     Route: 048
     Dates: start: 20250227, end: 20250410
  2. Almonertinib mesilate [Concomitant]
     Indication: Lung neoplasm malignant
     Dosage: 110.000 MG
     Route: 048
     Dates: start: 20250227, end: 20250410

REACTIONS (6)
  - Asthenia [Recovering/Resolving]
  - Vomiting [Recovering/Resolving]
  - Nausea [Recovering/Resolving]
  - Decreased appetite [Recovering/Resolving]
  - Hypertension [Unknown]
  - Blood potassium abnormal [Unknown]

NARRATIVE: CASE EVENT DATE: 20250410
